FAERS Safety Report 20589080 (Version 4)
Quarter: 2022Q2

REPORT INFORMATION
  Report Type: Report from Study
  Country: US (occurrence: US)
  Receive Date: 20220314
  Receipt Date: 20220502
  Transmission Date: 20220721
  Serious: Yes (Other)
  Sender: FDA-Public Use
  Company Number: US-MYLANLABS-2022M1018566

PATIENT
  Age: 34 Year
  Sex: Female

DRUGS (2)
  1. AMNESTEEM [Suspect]
     Active Substance: ISOTRETINOIN
     Indication: Product used for unknown indication
     Dosage: 40 MILLIGRAM, QD
     Route: 048
     Dates: start: 20210923, end: 20220302
  2. ORTHO TRI CYCLEN [Concomitant]
     Active Substance: ETHINYL ESTRADIOL\NORGESTIMATE
     Dosage: UNK
     Dates: end: 20220211

REACTIONS (3)
  - Maternal exposure during pregnancy [Recovered/Resolved]
  - Abdominoplasty [Recovering/Resolving]
  - Unintended pregnancy [Unknown]

NARRATIVE: CASE EVENT DATE: 20220210
